FAERS Safety Report 11883399 (Version 1)
Quarter: 2015Q4

REPORT INFORMATION
  Report Type: Spontaneous
  Country: US (occurrence: FR)
  Receive Date: 20151231
  Receipt Date: 20151231
  Transmission Date: 20160305
  Serious: Yes (Death, Hospitalization)
  Sender: FDA-Public Use
  Company Number: US-ACTAVIS-2015-16467

PATIENT
  Sex: Male
  Weight: 70.5 kg

DRUGS (1)
  1. MORPHINE SULFATE (AELLC) [Suspect]
     Active Substance: MORPHINE SULFATE
     Indication: ABDOMINAL PAIN
     Dosage: UNK
     Route: 065
     Dates: start: 20150613, end: 20150615

REACTIONS (3)
  - Respiratory failure [Fatal]
  - Lung disorder [Unknown]
  - Overdose [Fatal]
